FAERS Safety Report 10196455 (Version 1)
Quarter: 2014Q2

REPORT INFORMATION
  Report Type: Spontaneous
  Country: US (occurrence: None)
  Receive Date: 20140522
  Receipt Date: 20140522
  Transmission Date: 20141212
  Serious: Yes (Hospitalization)
  Sender: FDA-Public Use
  Company Number: B0995120A

PATIENT
  Age: 33 Year
  Sex: Female

DRUGS (7)
  1. BUPROPION HYDROCHLORIDE UNSPECIFIED TABLET (GENERIC) (BUPROPION HYDROCHLORIDE) [Suspect]
     Indication: PRODUCT USED FOR UNKNOWN INDICATION
  2. ETHANOL (FORMULATION UNKNOWN) (ALCOHOL) [Suspect]
     Indication: PRODUCT USED FOR UNKNOWN INDICATION
  3. GABAPENTIN [Concomitant]
  4. BENZODIAZEPINES [Concomitant]
  5. AMPHETAMINE MEDICATION [Concomitant]
  6. NICOTINE [Concomitant]
  7. DIAZEPAM [Concomitant]

REACTIONS (7)
  - Partial seizures [None]
  - Mental status changes [None]
  - Drug screen positive [None]
  - Acute lung injury [None]
  - Blood ethanol increased [None]
  - Hypotension [None]
  - Overdose [None]
